FAERS Safety Report 18485413 (Version 2)
Quarter: 2021Q1

REPORT INFORMATION
  Report Type: Spontaneous
  Country: JP (occurrence: JP)
  Receive Date: 20201110
  Receipt Date: 20210106
  Transmission Date: 20210419
  Serious: Yes (Other)
  Sender: FDA-Public Use
  Company Number: JP-TEVA-2020-JP-1846090

PATIENT
  Age: 70 Year
  Sex: Female

DRUGS (2)
  1. DOCETAXEL. [Suspect]
     Active Substance: DOCETAXEL
     Indication: SQUAMOUS CELL CARCINOMA OF HEAD AND NECK
     Route: 013
  2. NEDAPLATIN [Suspect]
     Active Substance: NEDAPLATIN
     Indication: SQUAMOUS CELL CARCINOMA OF HEAD AND NECK
     Dosage: AT FIRST INFUSION THE RATE WAS KEPT 3 ML/MIN WHICH REDUCED TO 1.5 IN SECOND INFUSION DUE TO COMPL...
     Route: 013

REACTIONS (1)
  - Cerebral haemorrhage [Recovered/Resolved]
